FAERS Safety Report 8295130-0 (Version None)
Quarter: 2012Q2

REPORT INFORMATION
  Report Type: 
  Country: None (occurrence: None)
  Receive Date: 20120418
  Receipt Date: 20120411
  Transmission Date: 20120825
  Serious: Yes (Death, Other)
  Sender: FDA-Public Use
  Company Number: TR-PFIZER INC-2012091899

PATIENT
  Age: 72 Year

DRUGS (1)
  1. TYGACIL [Suspect]
     Indication: PNEUMONIA

REACTIONS (3)
  - DEATH [None]
  - HEPATIC ENZYME INCREASED [None]
  - HEPATOTOXICITY [None]
